FAERS Safety Report 21033036 (Version 1)
Quarter: 2022Q2

REPORT INFORMATION
  Report Type: Spontaneous
  Country: US (occurrence: None)
  Receive Date: 20220630
  Receipt Date: 20220630
  Transmission Date: 20220721
  Serious: No
  Sender: FDA-Public Use
  Company Number: None

PATIENT
  Age: 59 Year
  Sex: Female

DRUGS (15)
  1. PAXLOVID [Suspect]
     Active Substance: NIRMATRELVIR\RITONAVIR
     Indication: COVID-19
     Dosage: OTHER QUANTITY : 3 TABLET(S);?FREQUENCY : TWICE A DAY;?
     Route: 048
     Dates: start: 20220626, end: 20220630
  2. VASCEPA [Concomitant]
     Active Substance: ICOSAPENT ETHYL
  3. POTASSIUM [Concomitant]
     Active Substance: POTASSIUM
  4. LYRICA [Concomitant]
     Active Substance: PREGABALIN
  5. LISINOPRIL [Concomitant]
     Active Substance: LISINOPRIL
  6. HYDROCHLOROTHIAZIDE [Concomitant]
     Active Substance: HYDROCHLOROTHIAZIDE
  7. AMLODIPINE [Concomitant]
     Active Substance: AMLODIPINE BESYLATE
  8. CLONIDINE [Concomitant]
     Active Substance: CLONIDINE
  9. TRAMADOL [Concomitant]
     Active Substance: TRAMADOL
  10. CYCLOBENZAPRINE [Concomitant]
     Active Substance: CYCLOBENZAPRINE
  11. ALBUTEROL HFA [Concomitant]
  12. Hair skin and nails vitamin [Concomitant]
  13. VITAMIN D3 [Concomitant]
     Active Substance: CHOLECALCIFEROL
  14. VITAMIN B12 [Concomitant]
     Active Substance: CYANOCOBALAMIN
  15. GARLIC [Concomitant]
     Active Substance: GARLIC

REACTIONS (12)
  - Dysphonia [None]
  - Headache [None]
  - Dizziness [None]
  - Diarrhoea [None]
  - Myalgia [None]
  - Fatigue [None]
  - Eye irritation [None]
  - Ocular hyperaemia [None]
  - Stomatitis [None]
  - Decreased appetite [None]
  - Taste disorder [None]
  - Pruritus [None]
